FAERS Safety Report 6418237-9 (Version None)
Quarter: 2009Q4

REPORT INFORMATION
  Report Type: 
  Country: None (occurrence: None)
  Receive Date: 20091021
  Receipt Date: 20090605
  Transmission Date: 20100525
  Serious: No
  Sender: FDA-Public Use
  Company Number: ALL1-2009-01563

PATIENT
  Sex: 0

DRUGS (1)
  1. VYVANSE [Suspect]
     Dosage: 1X/DAY:QD, 2X/DAY:BID, ORAL

REACTIONS (3)
  - DRUG TOLERANCE [None]
  - INAPPROPRIATE SCHEDULE OF DRUG ADMINISTRATION [None]
  - LETHARGY [None]
